FAERS Safety Report 25372398 (Version 1)
Quarter: 2025Q2

REPORT INFORMATION
  Report Type: Spontaneous
  Country: IT (occurrence: IT)
  Receive Date: 20250529
  Receipt Date: 20250529
  Transmission Date: 20250717
  Serious: Yes (Life-Threatening, Hospitalization)
  Sender: UCB
  Company Number: None

PATIENT
  Age: 53 Year
  Sex: Female
  Weight: 68.5 kg

DRUGS (5)
  1. BIMZELX [Suspect]
     Active Substance: BIMEKIZUMAB-BKZX
     Indication: Product used for unknown indication
     Route: 058
     Dates: start: 20250506, end: 20250506
  2. VALPROATE SODIUM [Concomitant]
     Active Substance: VALPROATE SODIUM
     Indication: Product used for unknown indication
  3. EZEVAST [Concomitant]
     Indication: Product used for unknown indication
  4. ASPIRIN [Concomitant]
     Active Substance: ASPIRIN
     Indication: Product used for unknown indication
  5. TYOMOL [Concomitant]
     Indication: Product used for unknown indication

REACTIONS (5)
  - Dysphagia [Recovered/Resolved]
  - Dyspnoea [Recovered/Resolved]
  - Muscle contracture [Recovered/Resolved]
  - Myalgia [Recovered/Resolved]
  - Local reaction [Recovered/Resolved]

NARRATIVE: CASE EVENT DATE: 20250507
